FAERS Safety Report 6004995-4 (Version None)
Quarter: 2008Q4

REPORT INFORMATION
  Report Type: 
  Country: None (occurrence: None)
  Receive Date: 20081215
  Receipt Date: 20081202
  Transmission Date: 20090506
  Serious: Yes (Hospitalization, Other)
  Sender: FDA-Public Use
  Company Number: 2007US003204

PATIENT
  Age: 64 Year
  Sex: Male
  Weight: 72.6 kg

DRUGS (8)
  1. AMEVIVE [Suspect]
     Indication: PSORIASIS
     Dosage: 15 MG, WEEKLY, INTRAMUSCULAR
     Route: 030
     Dates: start: 20050426, end: 20050808
  2. SPIRIVA [Concomitant]
  3. ALBUTEROL [Concomitant]
  4. QVAR 40 [Concomitant]
  5. SYNTHROID [Concomitant]
  6. DIOVAN [Concomitant]
  7. ADVIL LIQUI-GELS [Concomitant]
  8. TRIAMCINOLONE [Concomitant]

REACTIONS (4)
  - BLADDER TRANSITIONAL CELL CARCINOMA [None]
  - HAEMATURIA [None]
  - LUNG DISORDER [None]
  - URINARY TRACT INFECTION [None]
